FAERS Safety Report 24685345 (Version 1)
Quarter: 2024Q4

REPORT INFORMATION
  Report Type: Spontaneous
  Country: US (occurrence: None)
  Receive Date: 20241127
  Receipt Date: 20241127
  Transmission Date: 20250114
  Serious: Yes (Life-Threatening)
  Sender: Public
  Company Number: None

PATIENT
  Age: 92 Year
  Sex: Male

DRUGS (1)
  1. APIXABAN [Suspect]
     Active Substance: APIXABAN
     Indication: Cerebrovascular accident prophylaxis
     Dosage: FREQUENCY : TWICE A DAY;?
     Route: 048
     Dates: start: 20231006, end: 20231221

REACTIONS (2)
  - Subdural haematoma [None]
  - Cerebral mass effect [None]

NARRATIVE: CASE EVENT DATE: 20231220
